FAERS Safety Report 25364161 (Version 1)
Quarter: 2025Q2

REPORT INFORMATION
  Report Type: Spontaneous
  Country: CN (occurrence: CN)
  Receive Date: 20250527
  Receipt Date: 20250527
  Transmission Date: 20250716
  Serious: Yes (Other)
  Sender: GE HEALTHCARE
  Company Number: None

PATIENT
  Age: 36 Year
  Sex: Male
  Weight: 85 kg

DRUGS (1)
  1. VISIPAQUE [Suspect]
     Active Substance: IODIXANOL
     Indication: Angiogram cerebral
     Route: 013
     Dates: start: 20250513, end: 20250513

REACTIONS (5)
  - Skin hypertrophy [Not Recovered/Not Resolved]
  - Swelling [Not Recovered/Not Resolved]
  - Skin warm [Not Recovered/Not Resolved]
  - Pruritus [Not Recovered/Not Resolved]
  - Contrast media allergy [Not Recovered/Not Resolved]

NARRATIVE: CASE EVENT DATE: 20250513
